FAERS Safety Report 17003063 (Version 1)
Quarter: 2019Q4

REPORT INFORMATION
  Report Type: Spontaneous
  Country: IT (occurrence: IT)
  Receive Date: 20191107
  Receipt Date: 20191107
  Transmission Date: 20200122
  Serious: Yes (Hospitalization)
  Sender: FDA-Public Use
  Company Number: IT-TEVA-2019-IT-1132246

PATIENT
  Age: 54 Year
  Sex: Female

DRUGS (26)
  1. VALPROIC ACID. [Suspect]
     Active Substance: VALPROIC ACID
     Indication: POST-TRAUMATIC EPILEPSY
     Route: 065
     Dates: start: 2017
  2. VALPROIC ACID. [Suspect]
     Active Substance: VALPROIC ACID
     Indication: PSYCHOGENIC SEIZURE
  3. FENOBARBITAL [Suspect]
     Active Substance: PHENOBARBITAL
     Indication: PSYCHOGENIC SEIZURE
  4. LACOSAMIDE. [Suspect]
     Active Substance: LACOSAMIDE
     Indication: PSYCHOGENIC SEIZURE
  5. ZONISAMIDE. [Suspect]
     Active Substance: ZONISAMIDE
     Indication: PSYCHOGENIC SEIZURE
  6. LEVOTHYROXINE. [Concomitant]
     Active Substance: LEVOTHYROXINE
     Route: 065
     Dates: start: 2017, end: 201907
  7. LORAZEPAM. [Suspect]
     Active Substance: LORAZEPAM
     Indication: PSYCHOGENIC SEIZURE
  8. FENOBARBITAL [Suspect]
     Active Substance: PHENOBARBITAL
     Indication: POST-TRAUMATIC EPILEPSY
     Route: 065
     Dates: start: 2017, end: 201901
  9. ZONISAMIDE. [Suspect]
     Active Substance: ZONISAMIDE
     Indication: POST-TRAUMATIC EPILEPSY
     Route: 065
     Dates: start: 2017, end: 201901
  10. CLOBAZAM. [Suspect]
     Active Substance: CLOBAZAM
     Indication: POST-TRAUMATIC EPILEPSY
     Route: 065
     Dates: start: 2017
  11. CLOBAZAM. [Suspect]
     Active Substance: CLOBAZAM
     Indication: PSYCHOGENIC SEIZURE
  12. QUETIAPINE. [Concomitant]
     Active Substance: QUETIAPINE
     Indication: PSYCHOTHERAPY
     Route: 065
  13. FENOBARBITAL [Suspect]
     Active Substance: PHENOBARBITAL
     Indication: SEIZURE
  14. LORAZEPAM. [Suspect]
     Active Substance: LORAZEPAM
     Indication: SEIZURE
     Dates: end: 201907
  15. QUETIAPINE. [Concomitant]
     Active Substance: QUETIAPINE
     Indication: PSYCHOTHERAPY
     Route: 065
  16. CARBOLITHIUM [Concomitant]
     Active Substance: LITHIUM CARBONATE
     Indication: PSYCHOTHERAPY
     Route: 065
  17. LACOSAMIDE. [Suspect]
     Active Substance: LACOSAMIDE
     Indication: SEIZURE
  18. ZONISAMIDE. [Suspect]
     Active Substance: ZONISAMIDE
     Indication: SEIZURE
  19. QUETIAPINE. [Concomitant]
     Active Substance: QUETIAPINE
     Indication: PSYCHOTHERAPY
     Route: 065
     Dates: start: 2017
  20. LACOSAMIDE. [Suspect]
     Active Substance: LACOSAMIDE
     Indication: POST-TRAUMATIC EPILEPSY
     Route: 065
     Dates: start: 2017, end: 201907
  21. LORAZEPAM. [Suspect]
     Active Substance: LORAZEPAM
     Indication: POST-TRAUMATIC EPILEPSY
     Route: 065
  22. CITALOPRAM [Concomitant]
     Active Substance: CITALOPRAM HYDROBROMIDE
     Indication: PSYCHOTHERAPY
     Route: 065
     Dates: start: 2017
  23. QUETIAPINE. [Concomitant]
     Active Substance: QUETIAPINE
     Indication: PSYCHOTHERAPY
     Route: 065
  24. CARBOLITHIUM [Concomitant]
     Active Substance: LITHIUM CARBONATE
     Indication: PSYCHOTHERAPY
     Route: 065
  25. VALPROIC ACID. [Suspect]
     Active Substance: VALPROIC ACID
     Indication: SEIZURE
  26. CLOBAZAM. [Suspect]
     Active Substance: CLOBAZAM
     Indication: SEIZURE

REACTIONS (2)
  - Alopecia [Unknown]
  - Drug resistance [Unknown]
